FAERS Safety Report 14125095 (Version 1)
Quarter: 2017Q4

REPORT INFORMATION
  Report Type: Spontaneous
  Country: US (occurrence: US)
  Receive Date: 20171025
  Receipt Date: 20171025
  Transmission Date: 20180321
  Serious: No
  Sender: FDA-Public Use
  Company Number: US-PERRIGO-17US025864

PATIENT
  Age: 37 Year
  Sex: Male
  Weight: 74.83 kg

DRUGS (1)
  1. NICOTINE POLACRILEX [Suspect]
     Active Substance: NICOTINE
     Indication: SMOKING CESSATION THERAPY
     Dosage: 4 MG, EVERY 1 TO 2 HOURS, TID
     Route: 002
     Dates: start: 20170727, end: 20170804

REACTIONS (4)
  - Oral discomfort [Recovered/Resolved]
  - Gingival erythema [Not Recovered/Not Resolved]
  - Gingival swelling [Recovered/Resolved]
  - Gingival discomfort [Recovered/Resolved]

NARRATIVE: CASE EVENT DATE: 20170728
